FAERS Safety Report 7632534-0 (Version None)
Quarter: 2011Q3

REPORT INFORMATION
  Report Type: 
  Country: None (occurrence: None)
  Receive Date: 20110725
  Receipt Date: 20101102
  Transmission Date: 20111222
  Serious: No
  Sender: FDA-Public Use
  Company Number: US-BRISTOL-MYERS SQUIBB COMPANY-15316383

PATIENT
  Age: 64 Year
  Sex: Male

DRUGS (12)
  1. ZETIA [Concomitant]
  2. FISH OIL [Concomitant]
     Dosage: 4 TABS DAILY
  3. METOPROLOL TARTRATE [Concomitant]
  4. CRESTOR [Concomitant]
  5. FENOFIBRATE [Concomitant]
  6. COUMADIN [Suspect]
     Indication: MYOCARDIAL INFARCTION
  7. COUMADIN [Suspect]
     Indication: CEREBROVASCULAR ACCIDENT
  8. NOVOLOG [Concomitant]
     Dosage: 1 DF = 70/30 UNITS NOS
  9. AMLODIPINE [Concomitant]
  10. DIOVAN HCT [Concomitant]
     Dosage: 1 DF = 160/25 MG
  11. METFORMIN HCL [Concomitant]
  12. MULTI-VITAMIN [Concomitant]
     Dosage: 1 DF = 1 UNITS NOS. 70/30

REACTIONS (1)
  - INTERNATIONAL NORMALISED RATIO DECREASED [None]
